FAERS Safety Report 16763456 (Version 1)
Quarter: 2019Q3

REPORT INFORMATION
  Report Type: Spontaneous
  Country: GB (occurrence: GB)
  Receive Date: 20190902
  Receipt Date: 20190902
  Transmission Date: 20191005
  Serious: Yes (Hospitalization)
  Sender: FDA-Public Use
  Company Number: GB-TEVA-2019-GB-1099991

PATIENT
  Age: 84 Year
  Sex: Male

DRUGS (11)
  1. SITAGLIPTIN [Concomitant]
     Active Substance: SITAGLIPTIN
  2. METFORMIN HYDROCHLORIDE. [Concomitant]
     Active Substance: METFORMIN HYDROCHLORIDE
  3. ATORVASTATIN [Concomitant]
     Active Substance: ATORVASTATIN
  4. OMEPRAZOLE. [Concomitant]
     Active Substance: OMEPRAZOLE
  5. LATANOPROST. [Concomitant]
     Active Substance: LATANOPROST
  6. ALLOPURINOL. [Concomitant]
     Active Substance: ALLOPURINOL
  7. NITROFURANTOIN. [Suspect]
     Active Substance: NITROFURANTOIN
     Route: 048
  8. ATENOLOL. [Concomitant]
     Active Substance: ATENOLOL
  9. ADCAL-D3 [Concomitant]
     Active Substance: CALCIUM CARBONATE\CHOLECALCIFEROL
  10. FERROUS SULFATE. [Concomitant]
     Active Substance: FERROUS SULFATE
  11. CANDESARTAN. [Concomitant]
     Active Substance: CANDESARTAN

REACTIONS (4)
  - Urinary tract infection [Unknown]
  - Acute kidney injury [Unknown]
  - Haematuria [Unknown]
  - Drug-induced liver injury [Unknown]
